FAERS Safety Report 17888577 (Version 1)
Quarter: 2020Q2

REPORT INFORMATION
  Report Type: Spontaneous
  Country: CN (occurrence: CN)
  Receive Date: 20200612
  Receipt Date: 20200612
  Transmission Date: 20200714
  Serious: Yes (Other)
  Sender: FDA-Public Use
  Company Number: CN-LUPIN PHARMACEUTICALS INC.-2020-02786

PATIENT
  Age: 46 Year
  Sex: Male

DRUGS (3)
  1. METRONIDAZOLE. [Suspect]
     Active Substance: METRONIDAZOLE
     Indication: AMOEBIC DYSENTERY
     Dosage: 1.8 GRAM, QD (LESS THAN 1 MONTH)
     Route: 048
  2. ETIMICIN [Concomitant]
     Active Substance: ETIMICIN SULFATE
     Indication: AMOEBIC DYSENTERY
     Dosage: UNK
     Route: 042
  3. ORNIDAZOLE [Concomitant]
     Active Substance: ORNIDAZOLE
     Indication: AMOEBIC DYSENTERY
     Dosage: UNK
     Route: 042

REACTIONS (3)
  - Encephalopathy [Recovering/Resolving]
  - Neuropathy peripheral [Recovering/Resolving]
  - Reversible splenial lesion syndrome [Recovering/Resolving]
